FAERS Safety Report 7757123-9 (Version None)
Quarter: 2011Q3

REPORT INFORMATION
  Report Type: 
  Country: None (occurrence: None)
  Receive Date: 20110916
  Receipt Date: 20110913
  Transmission Date: 20111222
  Serious: Yes (Other)
  Sender: FDA-Public Use
  Company Number: GB-MERCK-1109GBR00069

PATIENT
  Age: 10 Year
  Sex: Male
  Weight: 45 kg

DRUGS (3)
  1. FLUTICASONE PROPIONATE AND SALMETEROL XINAFOATE [Concomitant]
     Indication: ASTHMA
     Route: 055
     Dates: start: 20080717
  2. SINGULAIR [Suspect]
     Indication: ASTHMA
     Route: 048
     Dates: end: 20110602
  3. ALBUTEROL [Concomitant]
     Indication: ASTHMA
     Route: 055
     Dates: start: 20040101

REACTIONS (2)
  - TACHYCARDIA [None]
  - PALPITATIONS [None]
